FAERS Safety Report 15484833 (Version 1)
Quarter: 2018Q4

REPORT INFORMATION
  Report Type: Spontaneous
  Country: US (occurrence: US)
  Receive Date: 20181010
  Receipt Date: 20181010
  Transmission Date: 20190205
  Serious: No
  Sender: FDA-Public Use
  Company Number: US-ROCHE-2001451

PATIENT
  Age: 57 Year
  Sex: Female
  Weight: 56.75 kg

DRUGS (2)
  1. ZELBORAF [Suspect]
     Active Substance: VEMURAFENIB
     Indication: PRODUCT USED FOR UNKNOWN INDICATION
     Dosage: 3 TABLETS OF 240 MG TWICE A DAY, ONGOING: YES
     Route: 048
     Dates: start: 201707
  2. COTELLIC [Suspect]
     Active Substance: COBIMETINIB
     Indication: PRODUCT USED FOR UNKNOWN INDICATION
     Dosage: 2 TABLET ONCE A DAY FOR 21 DAYS ;ONGOING: YES
     Route: 048
     Dates: start: 201707

REACTIONS (1)
  - Alopecia [Not Recovered/Not Resolved]

NARRATIVE: CASE EVENT DATE: 201708
